FAERS Safety Report 11879296 (Version 2)
Quarter: 2016Q3

REPORT INFORMATION
  Report Type: Report from Study
  Country: PK (occurrence: PK)
  Receive Date: 20151230
  Receipt Date: 20160817
  Transmission Date: 20161109
  Serious: Yes (Hospitalization)
  Sender: FDA-Public Use
  Company Number: PHHY2015PK169010

PATIENT
  Sex: Female

DRUGS (1)
  1. ACLASTA [Suspect]
     Active Substance: ZOLEDRONIC ACID
     Indication: OSTEOPOROSIS
     Dosage: 5 MG, Q12MO
     Route: 042
     Dates: start: 20130908

REACTIONS (12)
  - Motor dysfunction [Unknown]
  - Ischaemic stroke [Unknown]
  - Gait disturbance [Unknown]
  - Fall [Unknown]
  - Paralysis [Unknown]
  - Paresis [Unknown]
  - Sensory loss [Unknown]
  - Hypertension [Recovered/Resolved]
  - Movement disorder [Recovered/Resolved]
  - Coordination abnormal [Unknown]
  - Aphasia [Unknown]
  - Loss of consciousness [Recovered/Resolved]

NARRATIVE: CASE EVENT DATE: 20140909
